FAERS Safety Report 25440783 (Version 2)
Quarter: 2025Q2

REPORT INFORMATION
  Report Type: Report from Study
  Country: MX (occurrence: MX)
  Receive Date: 20250616
  Receipt Date: 20250617
  Transmission Date: 20250717
  Serious: Yes (Hospitalization)
  Sender: BIOVITRUM
  Company Number: MX-AstraZeneca-CH-00850354A

PATIENT
  Age: 5 Month
  Sex: Female
  Weight: 5.3 kg

DRUGS (10)
  1. PALIVIZUMAB [Suspect]
     Active Substance: PALIVIZUMAB
     Indication: Respiratory syncytial virus infection
     Route: 030
     Dates: start: 20250414, end: 20250414
  2. PALIVIZUMAB [Suspect]
     Active Substance: PALIVIZUMAB
     Route: 030
     Dates: start: 20250314, end: 20250314
  3. PALIVIZUMAB [Suspect]
     Active Substance: PALIVIZUMAB
     Route: 030
     Dates: start: 20250414, end: 20250414
  4. PALIVIZUMAB [Suspect]
     Active Substance: PALIVIZUMAB
     Route: 030
     Dates: start: 20250514, end: 20250514
  5. PALIVIZUMAB [Suspect]
     Active Substance: PALIVIZUMAB
     Route: 030
     Dates: start: 20250609, end: 20250609
  6. FLUTICASONE PROPIONATE [Concomitant]
     Active Substance: FLUTICASONE PROPIONATE
     Indication: Bronchopulmonary dysplasia
     Dates: start: 202412
  7. VITAMIN A [Concomitant]
     Active Substance: VITAMIN A
     Indication: Prophylaxis
     Route: 048
     Dates: start: 202412
  8. HIERRO [Concomitant]
     Indication: Haemoglobin abnormal
     Route: 048
     Dates: start: 202506
  9. VITAMIN C [Concomitant]
     Active Substance: ASCORBIC ACID
     Indication: Prophylaxis
     Route: 048
     Dates: start: 202412
  10. VITAMIN D [Concomitant]
     Active Substance: VITAMIN D NOS
     Indication: Prophylaxis
     Route: 048
     Dates: start: 202412

REACTIONS (4)
  - Injection site pain [Recovered/Resolved]
  - Eye haemorrhage [Unknown]
  - Pain [Recovered/Resolved]
  - Discomfort [Recovered/Resolved]

NARRATIVE: CASE EVENT DATE: 20250414
